FAERS Safety Report 5025104-4 (Version None)
Quarter: 2006Q2

REPORT INFORMATION
  Report Type: 
  Country: None (occurrence: None)
  Receive Date: 20060426
  Receipt Date: 20060125
  Transmission Date: 20061013
  Serious: Yes (Other)
  Sender: FDA-Public Use
  Company Number: 2006012673

PATIENT
  Age: 36 Year
  Sex: Female
  Weight: 107.0489 kg

DRUGS (6)
  1. LYRICA [Suspect]
     Indication: BURNING SENSATION
     Dosage: 150 MG (50 MG, 3 IN 1 D), ORAL
     Route: 048
     Dates: start: 20060124
  2. LEXAPRO [Concomitant]
  3. LASIX [Concomitant]
  4. TRICOR [Concomitant]
  5. ZOCOR [Concomitant]
  6. SYNTHROID [Concomitant]

REACTIONS (1)
  - HEART RATE IRREGULAR [None]
